FAERS Safety Report 8490555-2 (Version None)
Quarter: 2012Q3

REPORT INFORMATION
  Report Type: 
  Country: None (occurrence: None)
  Receive Date: 20120705
  Receipt Date: 20120627
  Transmission Date: 20120928
  Serious: Yes (Hospitalization, Other)
  Sender: FDA-Public Use
  Company Number: US-ABBOTT-12P-163-0951848-00

PATIENT
  Sex: Female
  Weight: 76.726 kg

DRUGS (1)
  1. HUMIRA [Suspect]
     Indication: RHEUMATOID ARTHRITIS
     Route: 058
     Dates: start: 20100701, end: 20120606

REACTIONS (7)
  - PULMONARY OEDEMA [None]
  - OEDEMA PERIPHERAL [None]
  - COUGH [None]
  - MYOCARDIAL OEDEMA [None]
  - FLUID RETENTION [None]
  - CHEST DISCOMFORT [None]
  - DYSPNOEA [None]
